FAERS Safety Report 9496814 (Version 1)
Quarter: 2013Q3

REPORT INFORMATION
  Report Type: Spontaneous
  Country: US (occurrence: None)
  Receive Date: 20130903
  Receipt Date: 20130903
  Transmission Date: 20140515
  Serious: Yes (Hospitalization)
  Sender: FDA-Public Use
  Company Number: None

PATIENT
  Age: 58 Year
  Sex: Female
  Weight: 48.99 kg

DRUGS (4)
  1. ZPAK 250MG NDC [Suspect]
     Indication: PHARYNGITIS STREPTOCOCCAL
     Route: 048
     Dates: start: 20130802, end: 20130806
  2. METHOTOPROL [Concomitant]
  3. CLONZAPAM [Concomitant]
  4. PRIMODONE [Concomitant]

REACTIONS (1)
  - Pancreatitis [None]
